FAERS Safety Report 7208266-X (Version None)
Quarter: 2010Q4

REPORT INFORMATION
  Report Type: 
  Country: None (occurrence: None)
  Receive Date: 20101126
  Receipt Date: 20100806
  Transmission Date: 20110411
  Serious: Yes (Hospitalization, Other)
  Sender: FDA-Public Use
  Company Number: 312723

PATIENT
  Age: 60 Year
  Sex: Female
  Weight: 146 kg

DRUGS (9)
  1. VICTOZA [Suspect]
     Indication: DIABETES MELLITUS
     Dosage: SUBCUTANEOUS
     Route: 058
     Dates: start: 20100531, end: 20100601
  2. LEVOTHYROXINE SODIUM [Concomitant]
  3. SIMVASTATIN (SIMVASTATNI) [Concomitant]
  4. GABAPENTIN [Concomitant]
  5. ASPIRIN [Concomitant]
  6. SPIRONOLACTONE [Concomitant]
  7. METFORMIN (METFORMIN) [Concomitant]
  8. AMARYL (GLIMEPIRIIDE) [Concomitant]
  9. HUMALOG MX /01293501/ (INSULIN LISPRO) [Concomitant]

REACTIONS (1)
  - PANCREATITIS [None]
